FAERS Safety Report 5327749-0 (Version None)
Quarter: 2007Q2

REPORT INFORMATION
  Report Type: 
  Country: None (occurrence: None)
  Receive Date: 20070517
  Receipt Date: 20070508
  Transmission Date: 20071010
  Serious: Yes (Hospitalization)
  Sender: FDA-Public Use
  Company Number: CA-PURDUE-GBR_2007_0002980

PATIENT
  Age: 82 Year
  Sex: Male

DRUGS (5)
  1. MORPHINE SULFATE [Suspect]
     Indication: DYSPNOEA
     Dosage: 20 MG, Q12H
     Route: 065
  2. MORPHINE SULFATE [Suspect]
     Dosage: 2.5 UNK, UNK
     Route: 065
  3. MORPHINE SULFATE [Suspect]
     Dosage: 7.5 MG, Q4H
     Route: 065
  4. OXYGEN [Concomitant]
     Indication: CHRONIC OBSTRUCTIVE PULMONARY DISEASE
     Dosage: 3 L, MINUTE
     Route: 055
  5. CORTICOSTEROIDS [Concomitant]
     Indication: DRUG USE FOR UNKNOWN INDICATION
     Route: 048

REACTIONS (8)
  - CONFUSIONAL STATE [None]
  - CONSTIPATION [None]
  - DEHYDRATION [None]
  - EATING DISORDER [None]
  - SEPSIS [None]
  - SOMNOLENCE [None]
  - URINARY TRACT INFECTION [None]
  - VOMITING [None]
